FAERS Safety Report 8961548 (Version 1)
Quarter: 2012Q4

REPORT INFORMATION
  Report Type: 
  Country: US (occurrence: US)
  Receive Date: 20121213
  Receipt Date: 20121213
  Transmission Date: 20130627
  Serious: No
  Sender: FDA-Public Use
  Company Number: US-ALLERGAN-1216439US

PATIENT
  Age: 65 Year
  Sex: Male

DRUGS (7)
  1. LUMIGAN� 0.01% [Suspect]
     Indication: GLAUCOMA
     Dosage: 2 Gtt, qpm
     Route: 047
     Dates: start: 2011
  2. NARDIL                             /00037201/ [Concomitant]
     Indication: ANXIETY
     Dosage: 90 mg, qd
     Route: 048
  3. NARDIL                             /00037201/ [Concomitant]
     Indication: DEPRESSION
  4. DIAZEPAM [Concomitant]
     Indication: ANXIETY
     Dosage: 5 mg, qd
     Route: 048
  5. LEVOXYL [Concomitant]
     Indication: HYPOTHYROIDISM
     Dosage: 137 ?g, qpm
     Route: 048
  6. AMLODIPINE [Concomitant]
     Indication: HYPERTENSION
     Dosage: 5 mg, qd
     Route: 048
  7. SYSTANE [Concomitant]
     Indication: DRY EYES
     Dosage: UNK UNK, prn
     Route: 047

REACTIONS (2)
  - Headache [Not Recovered/Not Resolved]
  - Eye irritation [Not Recovered/Not Resolved]
